FAERS Safety Report 6810593-2 (Version None)
Quarter: 2010Q2

REPORT INFORMATION
  Report Type: 
  Country: None (occurrence: None)
  Receive Date: 20100625
  Receipt Date: 20100614
  Transmission Date: 20101027
  Serious: Yes (Other)
  Sender: FDA-Public Use
  Company Number: TRP_07045_2010

PATIENT
  Age: 34 Year
  Sex: Female
  Weight: 62 kg

DRUGS (2)
  1. RIBAVIRIN [Suspect]
     Indication: HEPATITIS C
     Dosage: 800 MG, DAILY
     Dates: start: 20050401, end: 20060101
  2. PEGINTERFERON ALFA-2B [Suspect]
     Indication: HEPATITIS C
     Dosage: 1.5 ?G/KG 1X/WEEK SUBCUTANEOUS
     Route: 058
     Dates: start: 20050401, end: 20060101

REACTIONS (5)
  - ALOPECIA UNIVERSALIS [None]
  - ANTI-THYROID ANTIBODY POSITIVE [None]
  - DERMATITIS [None]
  - ECZEMA [None]
  - HYPOTHYROIDISM [None]
